FAERS Safety Report 11477602 (Version 2)
Quarter: 2018Q1

REPORT INFORMATION
  Report Type: Spontaneous
  Country: US (occurrence: US)
  Receive Date: 20150909
  Receipt Date: 20180301
  Transmission Date: 20180508
  Serious: No
  Sender: FDA-Public Use
  Company Number: US-JAZZ-2014-US-011442

PATIENT
  Sex: Female

DRUGS (2)
  1. XYREM [Suspect]
     Active Substance: SODIUM OXYBATE
     Indication: CATAPLEXY
     Dosage: 2.25 G, BID
     Route: 048
     Dates: start: 201309
  2. XYREM [Suspect]
     Active Substance: SODIUM OXYBATE
     Indication: NARCOLEPSY

REACTIONS (4)
  - Drug dose omission [Unknown]
  - Folate deficiency [Unknown]
  - Weight decreased [Unknown]
  - Exposure during pregnancy [Unknown]

NARRATIVE: CASE EVENT DATE: 2013
